FAERS Safety Report 5411613-2 (Version None)
Quarter: 2007Q3

REPORT INFORMATION
  Report Type: 
  Country: None (occurrence: None)
  Receive Date: 20070810
  Receipt Date: 20070730
  Transmission Date: 20080115
  Serious: Yes (Other)
  Sender: FDA-Public Use
  Company Number: US-PFIZER INC-2007063885

PATIENT

DRUGS (2)
  1. CHANTIX [Suspect]
  2. LOTREL [Suspect]

REACTIONS (2)
  - ADVERSE DRUG REACTION [None]
  - HYPOTENSION [None]
